FAERS Safety Report 22099562 (Version 1)
Quarter: 2023Q1

REPORT INFORMATION
  Report Type: Spontaneous
  Country: JP (occurrence: JP)
  Receive Date: 20230315
  Receipt Date: 20230315
  Transmission Date: 20230417
  Serious: Yes (Hospitalization)
  Sender: FDA-Public Use
  Company Number: JP-ACTELION-A-CH2017-157424

PATIENT
  Age: 10 Month
  Sex: Female
  Weight: 8.5 kg

DRUGS (16)
  1. UPTRAVI [Suspect]
     Active Substance: SELEXIPAG
     Indication: Pulmonary arterial hypertension
     Dosage: 0.02 MG, QD
     Route: 048
     Dates: start: 20170614, end: 20170621
  2. TRACLEER [Concomitant]
     Active Substance: BOSENTAN
     Indication: Pulmonary arterial hypertension
     Dosage: 16 MG, QD
     Dates: start: 20161118
  3. REVATIO [Concomitant]
     Active Substance: SILDENAFIL CITRATE
     Indication: Pulmonary arterial hypertension
     Dosage: 16 MG, QD
     Dates: start: 20161114
  4. ENALAPRIL MALEATE [Concomitant]
     Active Substance: ENALAPRIL MALEATE
     Dosage: 2 MG, QD
     Dates: start: 20161019
  5. MOSAPRIDE CITRATE [Concomitant]
     Active Substance: MOSAPRIDE CITRATE
     Dosage: 8 MG, QD
     Dates: start: 20170104, end: 20170922
  6. AMBROXOL HYDROCHLORIDE [Concomitant]
     Active Substance: AMBROXOL HYDROCHLORIDE
     Dosage: 7.2 MG, QD
     Dates: start: 20170123, end: 20170801
  7. CARBOCYSTEINE [Concomitant]
     Active Substance: CARBOCYSTEINE
     Dosage: 240 MG, QD
     Dates: start: 20170123, end: 20170830
  8. PROBIOTICS NOS [Concomitant]
     Active Substance: PROBIOTICS NOS
     Dosage: 0.75 G, QD
     Dates: start: 20170605
  9. ASPIRIN [Concomitant]
     Active Substance: ASPIRIN
     Dosage: 40 MG, QD
     Dates: start: 20170111
  10. PHENOBARBITAL [Concomitant]
     Active Substance: PHENOBARBITAL
     Dosage: 32 MG, QD
     Dates: start: 20170111, end: 20170830
  11. HYDROXYZINE PAMOATE [Concomitant]
     Active Substance: HYDROXYZINE PAMOATE
     Dosage: 8 MG, QD
     Dates: start: 20170106, end: 20170911
  12. FUROSEMIDE [Concomitant]
     Active Substance: FUROSEMIDE
     Dosage: 40 MG, QD
     Dates: start: 20160725
  13. SPIRONOLACTONE [Concomitant]
     Active Substance: SPIRONOLACTONE
     Dosage: 40 MG, QD
     Dates: start: 20160725
  14. SAMSCA [Concomitant]
     Active Substance: TOLVAPTAN
     Dosage: 6 MG, QD
     Dates: start: 20160725
  15. MILRINONE [Concomitant]
     Active Substance: MILRINONE
     Dosage: 6.1 MG, QD
     Dates: start: 20170524, end: 20170622
  16. CARPERITIDE [Concomitant]
     Active Substance: CARPERITIDE
     Dosage: 500 MCG, QD
     Dates: start: 20170524, end: 20170615

REACTIONS (2)
  - Platelet count decreased [Recovered/Resolved]
  - Off label use [Unknown]

NARRATIVE: CASE EVENT DATE: 20170619
